FAERS Safety Report 12851481 (Version 2)
Quarter: 2017Q1

REPORT INFORMATION
  Report Type: Report from Study
  Country: CO (occurrence: CO)
  Receive Date: 20161017
  Receipt Date: 20170109
  Transmission Date: 20170428
  Serious: Yes (Death, Hospitalization)
  Sender: FDA-Public Use
  Company Number: PHHY2016CO127594

PATIENT
  Age: 77 Year
  Sex: Female
  Weight: 42 kg

DRUGS (1)
  1. REVOLADE [Suspect]
     Active Substance: ELTROMBOPAG
     Indication: IMMUNE THROMBOCYTOPENIC PURPURA
     Dosage: 25 MG, BID
     Route: 048
     Dates: start: 20160830

REACTIONS (6)
  - Platelet count decreased [Unknown]
  - Haematochezia [Unknown]
  - Disease complication [Fatal]
  - Pyrexia [Unknown]
  - Chills [Unknown]
  - Dyspnoea [Unknown]

NARRATIVE: CASE EVENT DATE: 20161012
